FAERS Safety Report 6167998-5 (Version None)
Quarter: 2009Q2

REPORT INFORMATION
  Report Type: 
  Country: None (occurrence: None)
  Receive Date: 20090427
  Receipt Date: 20090422
  Transmission Date: 20091009
  Serious: Yes (Life-Threatening, Hospitalization)
  Sender: FDA-Public Use
  Company Number: CZ-ROCHE-586252

PATIENT
  Sex: Male
  Weight: 105.5 kg

DRUGS (16)
  1. METHOXY POLYETHYLENE GLYCOL-EPOETIN BETA [Suspect]
     Dosage: FORM: BOLUS
     Route: 040
     Dates: start: 20080512, end: 20080901
  2. NAFTIDROFURYL [Concomitant]
     Dates: start: 20061116
  3. FUROSEMID [Concomitant]
     Dates: start: 20061118
  4. DOXAZOSIN MESYLATE [Concomitant]
     Dates: start: 20061118
  5. BETAXOLOL [Concomitant]
     Dates: start: 20061118
  6. LOSARTAN POTASSIUM [Concomitant]
     Dates: start: 20070131
  7. ALLOPURINOL [Concomitant]
     Dates: start: 20070227
  8. FELODIPINE [Concomitant]
     Dates: start: 20080317
  9. CALCIPOTRIOLUM [Concomitant]
     Dates: start: 20080105
  10. ATORVASTATIN [Concomitant]
     Dates: start: 20061118
  11. ZOLPIDEM TARTRATE [Concomitant]
     Dates: start: 20080412
  12. CALCIUM CARBONICUM [Concomitant]
     Dates: start: 20080219
  13. RILMENIDINE [Concomitant]
     Dosage: DRUG NAME: RILMENIDIN
     Dates: start: 20080301
  14. FOSINOPRIL SODIUM [Concomitant]
     Dates: start: 20080906
  15. TICLOPIDINE HCL [Concomitant]
     Dates: start: 20080628
  16. SEVELAMER [Concomitant]
     Dates: start: 20070719

REACTIONS (2)
  - BENIGN PANCREATIC NEOPLASM [None]
  - DIAGNOSTIC PROCEDURE [None]
